FAERS Safety Report 8079441-X (Version None)
Quarter: 2012Q1

REPORT INFORMATION
  Report Type: 
  Country: None (occurrence: None)
  Receive Date: 20120128
  Receipt Date: 20110823
  Transmission Date: 20120608
  Serious: No
  Sender: FDA-Public Use
  Company Number: US-ABBOTT-11P-163-0848761-00

PATIENT
  Age: 35 Year
  Sex: Female

DRUGS (5)
  1. PENTASA [Concomitant]
     Indication: PRODUCT USED FOR UNKNOWN INDICATION
  2. HUMIRA [Suspect]
     Indication: CROHN'S DISEASE
     Dosage: LOADING DOSE
     Dates: start: 20110809, end: 20110809
  3. HUMIRA [Suspect]
  4. HUMIRA [Suspect]
     Dosage: LOADING DOSE
     Dates: start: 20110823, end: 20110823
  5. XANAX [Concomitant]
     Indication: ANXIETY

REACTIONS (5)
  - HEADACHE [None]
  - INJECTION SITE ERYTHEMA [None]
  - INJECTION SITE PAPULE [None]
  - INJECTION SITE HAEMATOMA [None]
  - PRURITUS [None]
